FAERS Safety Report 17818049 (Version 1)
Quarter: 2020Q2

REPORT INFORMATION
  Report Type: Spontaneous
  Country: FR (occurrence: FR)
  Receive Date: 20200522
  Receipt Date: 20200522
  Transmission Date: 20200714
  Serious: Yes (Death, Life-Threatening, Hospitalization, Other)
  Sender: FDA-Public Use
  Company Number: NVSC2020FR137955

PATIENT
  Age: 11 Year
  Sex: Female
  Weight: 38 kg

DRUGS (5)
  1. AMOXICILLIN SODIUM [Suspect]
     Active Substance: AMOXICILLIN SODIUM
     Indication: PRODUCT USED FOR UNKNOWN INDICATION
     Dosage: UNK
     Route: 065
     Dates: start: 20150530, end: 20150605
  2. BENZALKONIUM CHLORIDE. [Concomitant]
     Active Substance: BENZALKONIUM CHLORIDE
     Indication: PRODUCT USED FOR UNKNOWN INDICATION
     Dosage: UNK
     Route: 065
  3. DOLIPRANE [Suspect]
     Active Substance: ACETAMINOPHEN
     Indication: PRODUCT USED FOR UNKNOWN INDICATION
     Dosage: 1 DF, 4X/DAY
     Route: 065
     Dates: start: 20150530, end: 20150605
  4. IMODIUM [Suspect]
     Active Substance: LOPERAMIDE HYDROCHLORIDE
     Indication: PRODUCT USED FOR UNKNOWN INDICATION
     Dosage: 1 DF, 3X/DAY
     Route: 048
     Dates: start: 20150530, end: 20150605
  5. ADVIL [Suspect]
     Active Substance: IBUPROFEN
     Indication: HEADACHE
     Dosage: UNK
     Route: 048
     Dates: start: 20150606, end: 20150614

REACTIONS (20)
  - Acute respiratory failure [Fatal]
  - Rash [Fatal]
  - Injury corneal [Fatal]
  - Respiratory failure [Fatal]
  - Bone infarction [Fatal]
  - Candida sepsis [Fatal]
  - Alanine aminotransferase increased [Fatal]
  - Withdrawal syndrome [Fatal]
  - Pancreatitis chronic [Fatal]
  - Respiratory disorder [Fatal]
  - Gamma-glutamyltransferase increased [Fatal]
  - Oesophageal stenosis [Fatal]
  - Post-traumatic stress disorder [Fatal]
  - Toxic epidermal necrolysis [Fatal]
  - Tonsillitis streptococcal [Fatal]
  - Obliterative bronchiolitis [Fatal]
  - Calculus bladder [Fatal]
  - Pneumonia [Fatal]
  - Skin exfoliation [Fatal]
  - Hypertension [Fatal]

NARRATIVE: CASE EVENT DATE: 2015
